FAERS Safety Report 8454762-7 (Version None)
Quarter: 2012Q2

REPORT INFORMATION
  Report Type: 
  Country: None (occurrence: None)
  Receive Date: 20120621
  Receipt Date: 20120615
  Transmission Date: 20120825
  Serious: Yes (Death)
  Sender: FDA-Public Use
  Company Number: IT-JNJFOC-20120607472

PATIENT
  Sex: Male
  Weight: 82 kg

DRUGS (2)
  1. ABIRATERONE ACETATE [Suspect]
     Indication: PROSTATE CANCER METASTATIC
     Dosage: 4 TABLETS, EACH 250 MG
     Route: 048
     Dates: start: 20120507
  2. ABIRATERONE ACETATE [Suspect]
     Route: 048

REACTIONS (1)
  - CARDIAC ARREST [None]
